FAERS Safety Report 25776482 (Version 1)
Quarter: 2025Q3

REPORT INFORMATION
  Report Type: Spontaneous
  Country: US (occurrence: US)
  Receive Date: 20250909
  Receipt Date: 20250909
  Transmission Date: 20251020
  Serious: No
  Sender: DOMPE FARMACEUTICI
  Company Number: US-FARMAPROD-202503-0718

PATIENT
  Age: 44 Year
  Sex: Female
  Weight: 58.97 kg

DRUGS (16)
  1. OXERVATE [Suspect]
     Active Substance: CENEGERMIN-BKBJ
     Indication: Neurotrophic keratopathy
     Route: 047
     Dates: start: 20250227
  2. OXERVATE [Suspect]
     Active Substance: CENEGERMIN-BKBJ
     Indication: Ulcerative keratitis
  3. SSD [Concomitant]
     Active Substance: SILVER SULFADIAZINE
  4. PROPRANOLOL HYDROCHLORIDE [Concomitant]
     Active Substance: PROPRANOLOL HYDROCHLORIDE
  5. SUMATRIPTAN SUCCINATE [Concomitant]
     Active Substance: SUMATRIPTAN SUCCINATE
  6. CYCLOBENZAPRINE HYDROCHLORIDE [Concomitant]
     Active Substance: CYCLOBENZAPRINE HYDROCHLORIDE
  7. ALPRAZOLAM [Concomitant]
     Active Substance: ALPRAZOLAM
  8. CIMETIDINE [Concomitant]
     Active Substance: CIMETIDINE
  9. ESTRADIOL [Concomitant]
     Active Substance: ESTRADIOL
  10. BUTALBITAL-ACETAMINOPHEN-CAFFE [Concomitant]
  11. TERBINAFINE HYDROCHLORIDE [Concomitant]
     Active Substance: TERBINAFINE HYDROCHLORIDE
  12. VYVANSE [Concomitant]
     Active Substance: LISDEXAMFETAMINE DIMESYLATE
  13. PROLIA [Concomitant]
     Active Substance: DENOSUMAB
  14. BACLOFEN [Concomitant]
     Active Substance: BACLOFEN
  15. DICYCLOMINE HYDROCHLORIDE [Concomitant]
     Active Substance: DICYCLOMINE HYDROCHLORIDE
  16. MUPIROCIN [Concomitant]
     Active Substance: MUPIROCIN

REACTIONS (3)
  - Eye pain [Unknown]
  - Photophobia [Unknown]
  - Iritis [Unknown]

NARRATIVE: CASE EVENT DATE: 20250303
